FAERS Safety Report 4388057-8 (Version None)
Quarter: 2004Q2

REPORT INFORMATION
  Report Type: 
  Country: None (occurrence: None)
  Receive Date: 20040607
  Receipt Date: 20030409
  Transmission Date: 20050107
  Serious: Yes (Other)
  Sender: FDA-Public Use
  Company Number: 331127

PATIENT

DRUGS (2)
  1. ACCUTANE [Suspect]
     Dosage: UNK
     Route: 065
     Dates: end: 20020715
  2. NA [Suspect]
     Dosage: NA
     Route: 065

REACTIONS (2)
  - NO ADVERSE DRUG EFFECT [None]
  - PREGNANCY [None]
